FAERS Safety Report 24222670 (Version 1)
Quarter: 2024Q3

REPORT INFORMATION
  Report Type: Spontaneous
  Country: US (occurrence: US)
  Receive Date: 20240819
  Receipt Date: 20240819
  Transmission Date: 20241017
  Serious: Yes (Other)
  Sender: SANOFI AVENTIS
  Company Number: US-SA-SAC20240817000187

PATIENT
  Sex: Female
  Weight: 55.7 kg

DRUGS (7)
  1. DUPIXENT [Suspect]
     Active Substance: DUPILUMAB
     Indication: Dermatitis atopic
     Dosage: 300 MG, QOW
     Route: 058
     Dates: end: 2024
  2. LIDOCAINE\PRILOCAINE [Concomitant]
     Active Substance: LIDOCAINE\PRILOCAINE
  3. GABAPENTIN [Concomitant]
     Active Substance: GABAPENTIN
  4. ONDANSETRON [Concomitant]
     Active Substance: ONDANSETRON
  5. OXYCODONE [Concomitant]
     Active Substance: OXYCODONE
  6. SCOPOLAMINE [Concomitant]
     Active Substance: SCOPOLAMINE
  7. CLOBETASOL PROPIONATE [Concomitant]
     Active Substance: CLOBETASOL PROPIONATE

REACTIONS (1)
  - Breast cancer female [Unknown]
